FAERS Safety Report 13664525 (Version 3)
Quarter: 2017Q2

REPORT INFORMATION
  Report Type: Report from Study
  Country: FR (occurrence: FR)
  Receive Date: 20170619
  Receipt Date: 20170627
  Transmission Date: 20170830
  Serious: Yes (Hospitalization)
  Sender: FDA-Public Use
  Company Number: FR-JNJFOC-20170614503

PATIENT
  Age: 65 Year
  Sex: Male

DRUGS (2)
  1. IBRUTINIB [Suspect]
     Active Substance: IBRUTINIB
     Indication: MANTLE CELL LYMPHOMA
     Dosage: FREQUENCY 1
     Route: 048
  2. IBRUTINIB [Suspect]
     Active Substance: IBRUTINIB
     Indication: CHRONIC LYMPHOCYTIC LEUKAEMIA
     Dosage: FREQUENCY 1
     Route: 048

REACTIONS (1)
  - Haematoma [Recovered/Resolved]

NARRATIVE: CASE EVENT DATE: 20170308
